FAERS Safety Report 14280830 (Version 1)
Quarter: 2017Q4

REPORT INFORMATION
  Report Type: Spontaneous
  Country: CN (occurrence: CN)
  Receive Date: 20171213
  Receipt Date: 20171213
  Transmission Date: 20180321
  Serious: Yes (Other)
  Sender: FDA-Public Use
  Company Number: CN-NOVOPROD-576095

PATIENT
  Age: 43 Year
  Sex: Male
  Weight: 58 kg

DRUGS (1)
  1. NOVORAPID [Suspect]
     Active Substance: INSULIN ASPART
     Indication: DIABETES MELLITUS
     Dosage: 10 U, BID
     Route: 058
     Dates: start: 20170922

REACTIONS (1)
  - Muscle contracture [Recovered/Resolved]

NARRATIVE: CASE EVENT DATE: 20170922
